FAERS Safety Report 16617170 (Version 1)
Quarter: 2019Q3

REPORT INFORMATION
  Report Type: Spontaneous
  Country: US (occurrence: US)
  Receive Date: 20190610
  Receipt Date: 20190610
  Transmission Date: 20191004
  Serious: Yes (Hospitalization, Other)
  Sender: FDA-Public Use
  Company Number: None

PATIENT
  Age: 33 Year
  Sex: Male
  Weight: 52.62 kg

DRUGS (2)
  1. MULTI-VITAMINS [Concomitant]
  2. IODINE CONTRAST (USED WITH CT SCANS) [Suspect]
     Active Substance: IODINE
     Indication: COMPUTERISED TOMOGRAM
     Dates: start: 20170530, end: 20170530

REACTIONS (5)
  - Testicular pain [None]
  - Headache [None]
  - Prostatic disorder [None]
  - Abdominal discomfort [None]
  - Epistaxis [None]

NARRATIVE: CASE EVENT DATE: 20170530
